FAERS Safety Report 8262404-9 (Version None)
Quarter: 2012Q2

REPORT INFORMATION
  Report Type: 
  Country: None (occurrence: None)
  Receive Date: 20120405
  Receipt Date: 20120326
  Transmission Date: 20120825
  Serious: Yes (Death, Hospitalization)
  Sender: FDA-Public Use
  Company Number: GB-JNJFOC-20100800119

PATIENT
  Age: 69 Year
  Sex: Male
  Weight: 81 kg

DRUGS (11)
  1. ESOMEPRAZOLE [Concomitant]
     Dosage: MORNINGS
     Route: 048
  2. INFLIXIMAB, RECOMBINANT [Suspect]
     Route: 042
     Dates: start: 20030521
  3. DIPYRIDAMOLE [Concomitant]
     Route: 048
  4. SULFASALAZINE [Concomitant]
     Route: 048
     Dates: start: 20030521
  5. ADCAL [Concomitant]
     Route: 048
  6. AMITRIPTYLINE HCL [Concomitant]
     Dosage: NIGHT TIME
     Route: 048
  7. ZOPICLONE [Concomitant]
     Dosage: NIGHT TIME
     Route: 048
  8. PERINDOPRIL ERBUMINE [Concomitant]
     Dosage: MORNINGS
     Route: 048
  9. OTHER BIOLOGICS [Concomitant]
  10. INFLIXIMAB, RECOMBINANT [Suspect]
     Indication: RHEUMATOID ARTHRITIS
     Route: 042
     Dates: start: 20081222
  11. METHOTREXATE [Concomitant]
     Dosage: ONCE WEEKLY ON WEDNESDAY
     Route: 048
     Dates: start: 20030521

REACTIONS (5)
  - SKIN ULCER [None]
  - PNEUMONIA [None]
  - SEPSIS [None]
  - DEATH [None]
  - CELLULITIS [None]
